FAERS Safety Report 11325371 (Version 1)
Quarter: 2015Q3

REPORT INFORMATION
  Report Type: Spontaneous
  Country: BR (occurrence: BR)
  Receive Date: 20150730
  Receipt Date: 20150730
  Transmission Date: 20151125
  Serious: Yes (Other)
  Sender: FDA-Public Use
  Company Number: BR-B.I. PHARMACEUTICALS,INC./RIDGEFIELD-2015-BI-40782BR

PATIENT
  Age: 8 Year
  Sex: Male
  Weight: 45 kg

DRUGS (12)
  1. ATENSINA [Suspect]
     Active Substance: CLONIDINE
     Dosage: 0.1 MG
     Route: 048
     Dates: start: 201501, end: 20150723
  2. SORINE [Concomitant]
     Active Substance: SOTALOL HYDROCHLORIDE
     Indication: ASTHMA
     Route: 045
  3. DAFORIN [Concomitant]
     Indication: PRODUCT USED FOR UNKNOWN INDICATION
     Dosage: DOSE PER APPLICATION AND DAILY DOSE: 30 DROPS
     Route: 048
     Dates: start: 20150702
  4. SINGULAIR [Concomitant]
     Active Substance: MONTELUKAST SODIUM
     Indication: ASTHMA
     Dosage: 5 MG
     Route: 048
     Dates: start: 2008
  5. AEROLIN [Concomitant]
     Active Substance: ALBUTEROL
     Indication: ASTHMA
     Dosage: FORMULATION: SPRAY
     Route: 055
     Dates: start: 2008
  6. LAMITOR [Concomitant]
     Active Substance: LAMOTRIGINE
     Indication: PRODUCT USED FOR UNKNOWN INDICATION
     Dosage: 450 MG
     Route: 048
     Dates: start: 20150702
  7. NEOZINE [Concomitant]
     Active Substance: LEVOMEPROMAZINE
     Indication: FEELING OF RELAXATION
     Dosage: DOSE PER APPLICATION: 20 DROPS IN THE MORNING, 20 DROPS IN THE AFTERNOON AND 40 DROPS AT NIGHT; DAIL
     Route: 048
     Dates: start: 2014
  8. SINGULAIR [Concomitant]
     Active Substance: MONTELUKAST SODIUM
     Indication: DRUG HYPERSENSITIVITY
  9. AEROLIN [Concomitant]
     Active Substance: ALBUTEROL
     Indication: LUNG DISORDER
  10. ATENSINA [Suspect]
     Active Substance: CLONIDINE
     Dosage: 0.1 MG
     Route: 048
     Dates: start: 20150724
  11. ATENSINA [Suspect]
     Active Substance: CLONIDINE
     Indication: PRODUCT USED FOR UNKNOWN INDICATION
     Dosage: 0.1 MG
     Route: 048
     Dates: start: 2012
  12. ATENSINA [Suspect]
     Active Substance: CLONIDINE
     Dosage: 0.6 MG
     Route: 048
     Dates: start: 20150723, end: 20150723

REACTIONS (10)
  - Vomiting [Not Recovered/Not Resolved]
  - Epistaxis [Unknown]
  - Hypersomnia [Unknown]
  - Screaming [Unknown]
  - Bruxism [Recovered/Resolved]
  - Off label use [Not Recovered/Not Resolved]
  - Hallucination [Recovered/Resolved]
  - Hypersomnia [Recovered/Resolved]
  - Seizure [Not Recovered/Not Resolved]
  - Aggression [Unknown]

NARRATIVE: CASE EVENT DATE: 2012
